FAERS Safety Report 23580240 (Version 1)
Quarter: 2024Q1

REPORT INFORMATION
  Report Type: Spontaneous
  Country: IT (occurrence: IT)
  Receive Date: 20240229
  Receipt Date: 20240229
  Transmission Date: 20240410
  Serious: Yes (Other)
  Sender: FDA-Public Use
  Company Number: None

PATIENT
  Sex: Female
  Weight: 63 kg

DRUGS (2)
  1. CIMZIA [Suspect]
     Active Substance: CERTOLIZUMAB PEGOL
     Indication: Product used for unknown indication
     Dosage: 400 MG PER WEEK 0,2,4 FOLLOWED BY A MAINTENANCE DOSE OF 200 MG EVERY TWO WEEKS
     Route: 058
     Dates: start: 20230508
  2. CIMZIA [Suspect]
     Active Substance: CERTOLIZUMAB PEGOL
     Dosage: 200 MILLIGRAM, EV 2 WEEKS(QOW) (400 MG PER WEEK 0,2,4 FOLLOWED BY A MAINTENANCE DOSE OF 200 MG EVERY
     Route: 058
     Dates: end: 20240105

REACTIONS (3)
  - Psoriatic arthropathy [Recovering/Resolving]
  - Genital candidiasis [Recovered/Resolved]
  - Drug ineffective [Unknown]

NARRATIVE: CASE EVENT DATE: 20230508
